FAERS Safety Report 6730855-7 (Version None)
Quarter: 2010Q2

REPORT INFORMATION
  Report Type: 
  Country: None (occurrence: None)
  Receive Date: 20100518
  Receipt Date: 20100505
  Transmission Date: 20101027
  Serious: Yes (Other)
  Sender: FDA-Public Use
  Company Number: PHHY2010US29299

PATIENT
  Sex: Female

DRUGS (5)
  1. RECLAST [Suspect]
     Route: 042
  2. PENICILLIN NOS [Suspect]
  3. MULTI-VITAMINS [Concomitant]
  4. CALCIUM [Concomitant]
  5. VITAMIN D [Concomitant]

REACTIONS (8)
  - ANXIETY [None]
  - ASTHENIA [None]
  - DIARRHOEA [None]
  - ENDODONTIC PROCEDURE [None]
  - MALAISE [None]
  - TOOTH DISORDER [None]
  - TOOTHACHE [None]
  - VOMITING [None]
